FAERS Safety Report 20025120 (Version 1)
Quarter: 2021Q4

REPORT INFORMATION
  Report Type: Report from Study
  Country: US (occurrence: US)
  Receive Date: 20211102
  Receipt Date: 20211102
  Transmission Date: 20220304
  Serious: Yes (Other)
  Sender: FDA-Public Use
  Company Number: US-JAZZ-2019-US-015810

PATIENT
  Sex: Female

DRUGS (24)
  1. XYREM [Suspect]
     Active Substance: SODIUM OXYBATE
     Indication: Narcolepsy
     Dosage: 2.25 G, BID
     Route: 048
     Dates: start: 201507, end: 201507
  2. XYREM [Suspect]
     Active Substance: SODIUM OXYBATE
     Dosage: DOSE ADJUSTMENT
     Route: 048
     Dates: start: 201507, end: 201607
  3. XYREM [Suspect]
     Active Substance: SODIUM OXYBATE
     Dosage: 3 G, BID
     Route: 048
     Dates: start: 201607
  4. VENTOLIN HFA [Concomitant]
     Active Substance: ALBUTEROL SULFATE
  5. VITAMIN D3 [Concomitant]
     Active Substance: CHOLECALCIFEROL
  6. MELOXICAM [Concomitant]
     Active Substance: MELOXICAM
  7. METHOCARBAMOL [Concomitant]
     Active Substance: METHOCARBAMOL
  8. METHYLPREDNISOLONE [Concomitant]
     Active Substance: METHYLPREDNISOLONE
  9. BACTRIM [Concomitant]
     Active Substance: SULFAMETHOXAZOLE\TRIMETHOPRIM
  10. BENZONATATE [Concomitant]
     Active Substance: BENZONATATE
  11. AMOXICILLIN [Concomitant]
     Active Substance: AMOXICILLIN
  12. APPLE CIDER VINEGAR [Concomitant]
     Active Substance: APPLE CIDER VINEGAR
  13. MAGNESIUM OXIDE [Concomitant]
     Active Substance: MAGNESIUM OXIDE
  14. NAPROXEN SODIUM [Concomitant]
     Active Substance: NAPROXEN SODIUM
  15. ORPHENADRINE [Concomitant]
     Active Substance: ORPHENADRINE
  16. PRAVASTATIN SODIUM [Concomitant]
     Active Substance: PRAVASTATIN SODIUM
  17. IBUPROFEN IB [Concomitant]
     Active Substance: IBUPROFEN
  18. CALCIUM [Concomitant]
     Active Substance: CALCIUM
  19. LEVOTHYROXINE [Concomitant]
     Active Substance: LEVOTHYROXINE
  20. MODAFINIL [Concomitant]
     Active Substance: MODAFINIL
  21. MONTELUKAST SODIUM [Concomitant]
     Active Substance: MONTELUKAST SODIUM
  22. PROAIR HFA [Concomitant]
     Active Substance: ALBUTEROL SULFATE
  23. SIMVASTATIN [Concomitant]
     Active Substance: SIMVASTATIN
  24. TOCOPHEROL [Concomitant]
     Active Substance: TOCOPHEROL

REACTIONS (3)
  - Major depression [Recovered/Resolved]
  - Cough [Not Recovered/Not Resolved]
  - Asthma exercise induced [Recovered/Resolved]
